FAERS Safety Report 9740349 (Version 1)
Quarter: 2013Q4

REPORT INFORMATION
  Report Type: Report from Study
  Country: US (occurrence: US)
  Receive Date: 20131209
  Receipt Date: 20131209
  Transmission Date: 20140711
  Serious: Yes (Other)
  Sender: FDA-Public Use
  Company Number: US-ELI_LILLY_AND_COMPANY-US201311009055

PATIENT
  Age: 31 Year
  Sex: Female

DRUGS (2)
  1. TADALAFIL [Suspect]
     Indication: PRODUCT USED FOR UNKNOWN INDICATION
     Route: 048
  2. LETAIRIS [Suspect]
     Indication: PULMONARY HYPERTENSION
     Dosage: 10 MG, QD
     Route: 048
     Dates: start: 20131101

REACTIONS (4)
  - Blindness [Unknown]
  - Pulmonary hypertension [Not Recovered/Not Resolved]
  - Syncope [Recovered/Resolved]
  - Hypotension [Unknown]
